FAERS Safety Report 19273041 (Version 2)
Quarter: 2022Q1

REPORT INFORMATION
  Report Type: Report from Study
  Country: CA (occurrence: CA)
  Receive Date: 20210519
  Receipt Date: 20220128
  Transmission Date: 20220423
  Serious: Yes (Other)
  Sender: FDA-Public Use
  Company Number: CA-JNJFOC-20210524005

PATIENT
  Sex: Female
  Weight: 89.3 kg

DRUGS (1)
  1. REMICADE [Suspect]
     Active Substance: INFLIXIMAB
     Indication: Psoriatic arthropathy
     Dosage: THERAPY START DATE :16-MAY-2016
     Route: 042
     Dates: start: 20160511

REACTIONS (1)
  - Systemic lupus erythematosus [Unknown]
